FAERS Safety Report 22527940 (Version 1)
Quarter: 2023Q2

REPORT INFORMATION
  Report Type: Report from Study
  Country: GB (occurrence: GB)
  Receive Date: 20230606
  Receipt Date: 20230606
  Transmission Date: 20230722
  Serious: Yes (Other)
  Sender: FDA-Public Use
  Company Number: GB-ABBVIE-5278585

PATIENT
  Age: 46 Year
  Sex: Female

DRUGS (4)
  1. RITONAVIR [Suspect]
     Active Substance: RITONAVIR
     Indication: Product used for unknown indication
     Route: 048
  2. Emtricitabine/Tenofovi r Alafenamide [Concomitant]
     Indication: Product used for unknown indication
     Dosage: 225
     Route: 048
  3. DARUNAVIR [Concomitant]
     Active Substance: DARUNAVIR
     Indication: Product used for unknown indication
     Dosage: 800
     Route: 065
  4. Darunavir/Cobicistat/E mtricitabine/Tenofovir Alafenamide [Concomitant]
     Indication: Product used for unknown indication
     Dosage: UNIT DOSE: 1160
     Route: 048

REACTIONS (2)
  - Abortion [Unknown]
  - Maternal exposure during pregnancy [Unknown]
